FAERS Safety Report 10495540 (Version 1)
Quarter: 2014Q4

REPORT INFORMATION
  Report Type: Spontaneous
  Country: US (occurrence: US)
  Receive Date: 20141003
  Receipt Date: 20141003
  Transmission Date: 20150528
  Serious: Yes (Other)
  Sender: FDA-Public Use
  Company Number: US-DYAX CORP.-2014DX000225

PATIENT
  Age: 23 Year
  Sex: Female

DRUGS (2)
  1. FIRAZYR [Suspect]
     Active Substance: ICATIBANT ACETATE
     Indication: PRODUCT USED FOR UNKNOWN INDICATION
     Route: 065
  2. KALBITOR [Suspect]
     Active Substance: ECALLANTIDE
     Indication: HEREDITARY ANGIOEDEMA
     Route: 058
     Dates: start: 20110112

REACTIONS (5)
  - Rash [Unknown]
  - Abortion spontaneous [Recovered/Resolved]
  - Migraine [Unknown]
  - Maternal exposure during pregnancy [None]
  - Hereditary angioedema [None]

NARRATIVE: CASE EVENT DATE: 20140825
